FAERS Safety Report 24205760 (Version 2)
Quarter: 2025Q4

REPORT INFORMATION
  Report Type: Spontaneous
  Country: AU (occurrence: AU)
  Receive Date: 20240813
  Receipt Date: 20251021
  Transmission Date: 20260117
  Serious: Yes (Death, Other)
  Sender: ABBVIE
  Company Number: AU-ABBVIE-5873891

PATIENT
  Age: 60 Year
  Sex: Male

DRUGS (30)
  1. VENETOCLAX [Suspect]
     Active Substance: VENETOCLAX
     Indication: Acute myeloid leukaemia
     Dosage: TABLET
     Route: 048
     Dates: start: 20180910, end: 20180916
  2. VENETOCLAX [Suspect]
     Active Substance: VENETOCLAX
     Indication: Acute myeloid leukaemia
     Dosage: TABLET
     Route: 048
     Dates: start: 20190805
  3. VENETOCLAX [Suspect]
     Active Substance: VENETOCLAX
     Indication: Acute myeloid leukaemia
     Dosage: TABLET
     Route: 048
     Dates: start: 20190330, end: 20190525
  4. ALLOPURINOL [Concomitant]
     Active Substance: ALLOPURINOL
     Indication: Prophylaxis
     Route: 048
     Dates: start: 20190730
  5. MAGNESIUM [Concomitant]
     Active Substance: MAGNESIUM
     Indication: Mineral supplementation
     Route: 048
  6. AZACITIDINE [Concomitant]
     Active Substance: AZACITIDINE
     Indication: Product used for unknown indication
     Dates: start: 20180910, end: 20180916
  7. AZACITIDINE [Concomitant]
     Active Substance: AZACITIDINE
     Indication: Product used for unknown indication
     Dates: start: 20161212, end: 20171031
  8. BACTRIM [Concomitant]
     Active Substance: SULFAMETHOXAZOLE\TRIMETHOPRIM
     Indication: Prophylaxis
     Dosage: 3 DOSAGE FORM WEEKLY?BACTRIM DS
     Route: 048
  9. AMOXICILLIN\CLAVULANATE POTASSIUM [Concomitant]
     Active Substance: AMOXICILLIN\CLAVULANATE POTASSIUM
     Indication: Prophylaxis
     Dosage: AMOCLAV CO-AMOXICLAV
     Route: 048
  10. VALTREX [Concomitant]
     Active Substance: VALACYCLOVIR HYDROCHLORIDE
     Indication: Prophylaxis
     Route: 048
  11. CYTARABINE [Concomitant]
     Active Substance: CYTARABINE
     Indication: Product used for unknown indication
     Dates: start: 20171224, end: 20180208
  12. CYTARABINE [Concomitant]
     Active Substance: CYTARABINE
     Indication: Product used for unknown indication
     Dates: start: 20190330, end: 20190525
  13. TRANEXAMIC ACID [Concomitant]
     Active Substance: TRANEXAMIC ACID
     Indication: Prophylaxis
     Dosage: TIME INTERVAL: 0.33333333 DAYS
     Route: 048
  14. IDARUBICIN HYDROCHLORIDE [Concomitant]
     Active Substance: IDARUBICIN HYDROCHLORIDE
     Indication: Product used for unknown indication
     Dates: start: 20171224, end: 20180208
  15. IDARUBICIN HYDROCHLORIDE [Concomitant]
     Active Substance: IDARUBICIN HYDROCHLORIDE
     Indication: Product used for unknown indication
     Dates: start: 20171224, end: 20180208
  16. ENTECAVIR [Concomitant]
     Active Substance: ENTECAVIR
     Indication: Prophylaxis
     Dosage: ENTECAVIR MONOHYDRATE
     Route: 048
  17. ALBUTEROL [Concomitant]
     Active Substance: ALBUTEROL
     Indication: Dyspnoea
     Dosage: TIME INTERVAL: AS NECESSARY
     Dates: start: 20180826
  18. EXJADE [Concomitant]
     Active Substance: DEFERASIROX
     Indication: Supplementation therapy
  19. POTASSIUM CHLORIDE [Concomitant]
     Active Substance: POTASSIUM CHLORIDE
     Indication: Mineral supplementation
     Route: 048
  20. DEXAMETHASONE [Concomitant]
     Active Substance: DEXAMETHASONE
     Indication: Premedication
     Route: 048
     Dates: start: 20190730
  21. CALCIUM CARBONATE [Concomitant]
     Active Substance: CALCIUM CARBONATE
     Indication: Mineral supplementation
     Dosage: TIME INTERVAL: 0.33333333 DAYS
     Route: 048
     Dates: end: 20190810
  22. PREDNISOLONE [Concomitant]
     Active Substance: PREDNISOLONE
     Indication: Antiinflammatory therapy
     Route: 048
     Dates: start: 20190825
  23. POSACONAZOLE [Concomitant]
     Active Substance: POSACONAZOLE
     Indication: Antifungal prophylaxis
     Route: 048
     Dates: start: 20190827
  24. RIBAVIRIN [Concomitant]
     Active Substance: RIBAVIRIN
     Indication: Antifungal prophylaxis
     Dosage: TIME INTERVAL: 0.33333333 DAYS
     Route: 048
     Dates: start: 20190827
  25. THIAMINE [Concomitant]
     Active Substance: THIAMINE
     Indication: Vitamin supplementation
     Route: 048
  26. THIAMINE [Concomitant]
     Active Substance: THIAMINE
     Indication: Vitamin supplementation
     Dosage: TIME INTERVAL: 0.33333333 DAYS
     Route: 048
  27. LORATADINE [Concomitant]
     Active Substance: LORATADINE
     Indication: Product used for unknown indication
     Dosage: TIME INTERVAL: AS NECESSARY
     Route: 048
  28. PALONOSETRON [Concomitant]
     Active Substance: PALONOSETRON
     Indication: Product used for unknown indication
     Dosage: TIME INTERVAL: AS NECESSARY: 250 ??G
     Route: 048
  29. GLYCOPYRROLATE [Concomitant]
     Active Substance: GLYCOPYRROLATE
     Indication: Prophylaxis
     Dosage: 400 ??G, PARENTERAL
  30. OXYGEN [Concomitant]
     Active Substance: OXYGEN
     Indication: Product used for unknown indication
     Route: 048

REACTIONS (32)
  - Death [Fatal]
  - Confusional state [Unknown]
  - Hypovolaemia [Recovered/Resolved]
  - Troponin I increased [Recovered/Resolved]
  - Hypotension [Recovered/Resolved]
  - Acute myeloid leukaemia [Unknown]
  - Urinary incontinence [Unknown]
  - Lethargy [Unknown]
  - Productive cough [Not Recovered/Not Resolved]
  - Pain [Unknown]
  - Lung infiltration [Unknown]
  - Hypoxia [Unknown]
  - Balance disorder [Unknown]
  - Oxygen saturation decreased [Unknown]
  - Fall [Unknown]
  - Disorientation [Unknown]
  - Dehydration [Unknown]
  - Respiratory syncytial virus test positive [Unknown]
  - Vomiting [Recovered/Resolved]
  - Diarrhoea [Recovered/Resolved]
  - Nausea [Unknown]
  - Troponin I increased [Recovered/Resolved]
  - Diarrhoea [Not Recovered/Not Resolved]
  - Subarachnoid haemorrhage [Unknown]
  - Respiratory disorder [Unknown]
  - Delirium [Unknown]
  - Cytomegalovirus infection [Not Recovered/Not Resolved]
  - Troponin I increased [Unknown]
  - Fluid intake reduced [Unknown]
  - Seizure prophylaxis [Unknown]
  - Pruritus [Unknown]
  - Herpes zoster [Unknown]

NARRATIVE: CASE EVENT DATE: 20190101
